FAERS Safety Report 4877336-3 (Version None)
Quarter: 2006Q1

REPORT INFORMATION
  Report Type: 
  Country: None (occurrence: None)
  Receive Date: 20060109
  Receipt Date: 20060102
  Transmission Date: 20060701
  Serious: Yes (Other)
  Sender: FDA-Public Use
  Company Number: 2006-01-0017

PATIENT
  Age: 10 Year
  Sex: Male

DRUGS (2)
  1. NASONEX [Suspect]
     Dosage: UNKNOWN NASAL SPRAY
     Route: 045
  2. AERIUS (DESLORATADINE) [Suspect]
     Dosage: UNKNOWN ORAL
     Route: 048

REACTIONS (5)
  - CORNEAL HYPERTROPHY [None]
  - EYE DISORDER [None]
  - HERPANGINA [None]
  - LYMPHADENITIS [None]
  - PYREXIA [None]
